FAERS Safety Report 7087298-9 (Version None)
Quarter: 2010Q4

REPORT INFORMATION
  Report Type: 
  Country: None (occurrence: None)
  Receive Date: 20101107
  Receipt Date: 20101026
  Transmission Date: 20110411
  Serious: Yes (Hospitalization)
  Sender: FDA-Public Use
  Company Number: PHHY2010NL72213

PATIENT
  Sex: Female
  Weight: 99 kg

DRUGS (3)
  1. ALISKIREN ALI+TAB [Suspect]
     Indication: HYPERTENSION
     Dosage: 150/12.5 MG
     Route: 048
     Dates: start: 20101012, end: 20101018
  2. DIOVAN HCT [Concomitant]
     Dosage: 320/12.5 MG, UNK
  3. CARDWA [Concomitant]
     Indication: HYPERTENSION
     Dosage: 4 MG, UNK

REACTIONS (3)
  - DYSPNOEA [None]
  - FATIGUE [None]
  - PULMONARY EMBOLISM [None]
